FAERS Safety Report 16243143 (Version 13)
Quarter: 2024Q2

REPORT INFORMATION
  Report Type: Other
  Country: DE (occurrence: None)
  Receive Date: 20190426
  Receipt Date: 20240411
  Transmission Date: 20240715
  Serious: Yes (Other)
  Sender: FDA-Public Use
  Company Number: DE-ROCHE-2297486

PATIENT
  Age: 44 Year
  Sex: Female
  Weight: 63 kg

DRUGS (14)
  1. OCREVUS [Suspect]
     Active Substance: OCRELIZUMAB
     Indication: Secondary progressive multiple sclerosis
     Dosage: 600 MG FOR 183 DAYS
     Route: 042
     Dates: start: 20190327
  2. OCREVUS [Suspect]
     Active Substance: OCRELIZUMAB
     Route: 042
     Dates: start: 20190410
  3. OCREVUS [Suspect]
     Active Substance: OCRELIZUMAB
     Route: 042
     Dates: start: 20191029
  4. OCREVUS [Suspect]
     Active Substance: OCRELIZUMAB
     Route: 042
     Dates: start: 20200422
  5. OCREVUS [Suspect]
     Active Substance: OCRELIZUMAB
     Route: 042
     Dates: start: 20210609
  6. CORTISONE [Suspect]
     Active Substance: CORTISONE
     Indication: Premedication
     Route: 065
  7. COMIRNATY (TOZINAMERAN) [Suspect]
     Active Substance: TOZINAMERAN
     Indication: COVID-19 immunisation
     Dosage: FIRST VACCINATION
     Route: 065
     Dates: start: 20210420
  8. COMIRNATY (TOZINAMERAN) [Suspect]
     Active Substance: TOZINAMERAN
     Dosage: SECOND VACCINATION
     Route: 065
     Dates: start: 20210511
  9. PREDNISOLONE [Concomitant]
     Active Substance: PREDNISOLONE
     Route: 042
     Dates: start: 20190327, end: 20190327
  10. PREDNISOLONE [Concomitant]
     Active Substance: PREDNISOLONE
     Dosage: SIDE EFFECT PROPHYLAXIS OF OCREVUS
     Route: 042
     Dates: start: 20190410, end: 20190410
  11. EBASTINE [Concomitant]
     Active Substance: EBASTINE
     Dosage: SIDE EFFECT PROPHYLAXIS OF OCREVUS
     Route: 048
     Dates: start: 20190326, end: 20190326
  12. EBASTINE [Concomitant]
     Active Substance: EBASTINE
     Route: 048
     Dates: start: 20190409, end: 20190411
  13. RANITIDINE HYDROCHLORIDE [Concomitant]
     Active Substance: RANITIDINE HYDROCHLORIDE
     Dosage: SIDE EFFECT PROPHYLAXIS OF OCREVUS
     Route: 048
     Dates: start: 20190326, end: 20190326
  14. RANITIDINE HYDROCHLORIDE [Concomitant]
     Active Substance: RANITIDINE HYDROCHLORIDE
     Route: 048
     Dates: start: 20190409, end: 20190411

REACTIONS (17)
  - Sleep disorder [Recovered/Resolved]
  - Pain in extremity [Recovered/Resolved]
  - Oral herpes [Recovered/Resolved]
  - Insomnia [Recovered/Resolved]
  - Weight increased [Not Recovered/Not Resolved]
  - Increased appetite [Recovered/Resolved]
  - Off label use [Unknown]
  - Pain in extremity [Recovered/Resolved]
  - Nausea [Recovered/Resolved]
  - Vomiting [Recovered/Resolved]
  - Diarrhoea [Recovered/Resolved]
  - Pain in extremity [Recovered/Resolved]
  - Food poisoning [Unknown]
  - Skin laceration [Recovered/Resolved]
  - Fall [Unknown]
  - Nasopharyngitis [Recovered/Resolved]
  - Cough [Recovered/Resolved]

NARRATIVE: CASE EVENT DATE: 20190327
